FAERS Safety Report 7385487-7 (Version None)
Quarter: 2011Q1

REPORT INFORMATION
  Report Type: 
  Country: None (occurrence: None)
  Receive Date: 20110330
  Receipt Date: 20110128
  Transmission Date: 20110831
  Serious: No
  Sender: FDA-Public Use
  Company Number: US-AMGEN-USASP2011005670

PATIENT
  Age: 60 Year
  Sex: Male

DRUGS (2)
  1. NPLATE [Suspect]
     Indication: IDIOPATHIC THROMBOCYTOPENIC PURPURA
     Dosage: UNK A?G/KG, UNK
     Dates: start: 20100721
  2. NPLATE [Suspect]
     Dosage: 1 A?G/KG, UNK
     Dates: end: 20100810

REACTIONS (1)
  - FATIGUE [None]
